FAERS Safety Report 10475487 (Version 1)
Quarter: 2014Q3

REPORT INFORMATION
  Report Type: Spontaneous
  Country: US (occurrence: None)
  Receive Date: 20140924
  Receipt Date: 20140924
  Transmission Date: 20150326
  Serious: Yes (Hospitalization)
  Sender: FDA-Public Use
  Company Number: None

PATIENT
  Age: 76 Year
  Sex: Male
  Weight: 98.5 kg

DRUGS (20)
  1. XARELTO [Suspect]
     Active Substance: RIVAROXABAN
     Indication: ATRIAL FLUTTER
     Dosage: 15MG DAILY PO?DATES OF USE: RECENT
     Route: 048
  2. METOPROLOL XL [Concomitant]
     Active Substance: METOPROLOL
  3. FLONASE [Concomitant]
     Active Substance: FLUTICASONE PROPIONATE
  4. LIPITOR [Concomitant]
     Active Substance: ATORVASTATIN CALCIUM
  5. FINASTERIDE. [Concomitant]
     Active Substance: FINASTERIDE
  6. PRASUGREL [Suspect]
     Active Substance: PRASUGREL
     Indication: CORONARY ARTERY DISEASE
     Dosage: 10MG DAILY PO ?DATES OF USE - CHRONIC
     Route: 048
  7. BUMEX [Concomitant]
     Active Substance: BUMETANIDE
  8. LISINOPRIL. [Concomitant]
     Active Substance: LISINOPRIL
  9. DIGOXIN. [Concomitant]
     Active Substance: DIGOXIN
  10. FOLIC ACID. [Concomitant]
     Active Substance: FOLIC ACID
  11. VITAMIN D [Concomitant]
     Active Substance: CHOLECALCIFEROL
  12. CELEXA [Concomitant]
     Active Substance: CITALOPRAM HYDROBROMIDE
  13. LEVOTHYROXINE [Concomitant]
     Active Substance: LEVOTHYROXINE
  14. TERAZOCIN [Concomitant]
  15. SPIRONOLACTONE. [Concomitant]
     Active Substance: SPIRONOLACTONE
  16. METHOTREXATE [Concomitant]
     Active Substance: METHOTREXATE
  17. PREDNISONE. [Concomitant]
     Active Substance: PREDNISONE
  18. CA CITRATE [Concomitant]
  19. ALPRAZOLAM. [Concomitant]
     Active Substance: ALPRAZOLAM
  20. PROTONIX [Concomitant]
     Active Substance: PANTOPRAZOLE SODIUM

REACTIONS (2)
  - Haemorrhagic anaemia [None]
  - Wound haemorrhage [None]

NARRATIVE: CASE EVENT DATE: 20140319
